FAERS Safety Report 17404198 (Version 2)
Quarter: 2020Q2

REPORT INFORMATION
  Report Type: Spontaneous
  Country: US (occurrence: US)
  Receive Date: 20200211
  Receipt Date: 20200624
  Transmission Date: 20200713
  Serious: Yes (Other)
  Sender: FDA-Public Use
  Company Number: US-PFIZER INC-2020054704

PATIENT
  Sex: Male

DRUGS (2)
  1. ATORVASTATIN CALCIUM. [Suspect]
     Active Substance: ATORVASTATIN CALCIUM
     Dosage: UNK
  2. HYDROCODONE [Concomitant]
     Active Substance: HYDROCODONE
     Indication: PAIN
     Dosage: UNK, AS NEEDED (7.5/325MG, 1 TABLET EVERY 6 HOURS AS NEEDED BY MOUTH)
     Route: 048

REACTIONS (11)
  - Drug hypersensitivity [Unknown]
  - Renal disorder [Unknown]
  - Feeling abnormal [Unknown]
  - Blood urine present [Unknown]
  - Bladder pain [Unknown]
  - Intervertebral disc disorder [Unknown]
  - Calculus bladder [Unknown]
  - Tooth loss [Unknown]
  - Cholelithiasis [Unknown]
  - Nephrocalcinosis [Unknown]
  - Calcinosis [Unknown]
